FAERS Safety Report 8924070 (Version 1)
Quarter: 2012Q4

REPORT INFORMATION
  Report Type: 
  Country: GB (occurrence: GB)
  Receive Date: 20121126
  Receipt Date: 20121126
  Transmission Date: 20130627
  Serious: Yes (Hospitalization, Other)
  Sender: FDA-Public Use
  Company Number: PHHY2012GB105795

PATIENT
  Age: 2 Hour
  Sex: Male
  Weight: 2.43 kg

DRUGS (2)
  1. SERTRALINE HYDROCHLORIDE [Suspect]
     Dosage: UNK
     Route: 064
  2. ANTIBIOTICS [Concomitant]

REACTIONS (9)
  - Premature baby [Unknown]
  - Neonatal respiratory distress syndrome [Recovering/Resolving]
  - Use of accessory respiratory muscles [Recovering/Resolving]
  - Tachypnoea [Recovering/Resolving]
  - Tardive dyskinesia [Recovering/Resolving]
  - Dyskinesia [Recovering/Resolving]
  - Hypertonia [Recovering/Resolving]
  - Grunting [Recovering/Resolving]
  - Foetal exposure during pregnancy [Unknown]
